FAERS Safety Report 10467892 (Version 1)
Quarter: 2014Q3

REPORT INFORMATION
  Report Type: Spontaneous
  Country: MA (occurrence: MA)
  Receive Date: 20140922
  Receipt Date: 20140922
  Transmission Date: 20150326
  Serious: Yes (Death, Other)
  Sender: FDA-Public Use
  Company Number: PHHY2014MA119831

PATIENT
  Age: 46 Year
  Sex: Male

DRUGS (5)
  1. CISPLATIN. [Suspect]
     Active Substance: CISPLATIN
     Indication: SARCOMATOID MESOTHELIOMA
  2. NAVELBINE [Suspect]
     Active Substance: VINORELBINE TARTRATE
     Indication: SARCOMATOID MESOTHELIOMA
  3. PACLITAXEL. [Suspect]
     Active Substance: PACLITAXEL
     Indication: SARCOMATOID MESOTHELIOMA
     Dosage: 175 MG/M2, UNK
  4. DOCETAXEL [Suspect]
     Active Substance: DOCETAXEL
     Indication: SARCOMATOID MESOTHELIOMA
     Dosage: 75 MG/M2, UNK
  5. CARBOPLATIN. [Suspect]
     Active Substance: CARBOPLATIN
     Indication: SARCOMATOID MESOTHELIOMA

REACTIONS (6)
  - Drug resistance [Unknown]
  - Renal failure acute [Unknown]
  - Lymphadenopathy [Unknown]
  - Neuropathy peripheral [Unknown]
  - Drug effect incomplete [Unknown]
  - Death [Fatal]
